FAERS Safety Report 9510363 (Version 1)
Quarter: 2013Q3

REPORT INFORMATION
  Report Type: Spontaneous
  Country: US (occurrence: US)
  Receive Date: 20130909
  Receipt Date: 20130909
  Transmission Date: 20140515
  Serious: No
  Sender: FDA-Public Use
  Company Number: US-BRISTOL-MYERS SQUIBB COMPANY-17433004

PATIENT
  Sex: Male

DRUGS (3)
  1. ABILIFY [Suspect]
     Indication: ANXIETY
     Dates: start: 2009
  2. ABILIFY [Suspect]
     Indication: DEPRESSION
     Dates: start: 2009
  3. SEROQUEL [Suspect]

REACTIONS (4)
  - Poor quality sleep [Unknown]
  - Weight increased [Unknown]
  - Anxiety [Unknown]
  - Increased appetite [Unknown]
